FAERS Safety Report 21592643 (Version 1)
Quarter: 2022Q4

REPORT INFORMATION
  Report Type: Spontaneous
  Country: KR (occurrence: KR)
  Receive Date: 20221114
  Receipt Date: 20221114
  Transmission Date: 20230113
  Serious: Yes (Other)
  Sender: FDA-Public Use
  Company Number: KR-MYLANLABS-2022M1124750

PATIENT
  Age: 57 Year
  Sex: Male

DRUGS (3)
  1. LYRICA [Suspect]
     Active Substance: PREGABALIN
     Indication: Metastases to lung
     Dosage: 1 DOSAGE FORM, QD
     Route: 065
     Dates: start: 20181219
  2. LYRICA [Suspect]
     Active Substance: PREGABALIN
     Indication: Metastases to lung
     Dosage: 1 DOSAGE FORM, QD
     Route: 065
     Dates: start: 20181219
  3. AMITRIPTYLINE HYDROCHLORIDE [Suspect]
     Active Substance: AMITRIPTYLINE HYDROCHLORIDE
     Indication: Metastases to lung
     Dosage: UNK UNK, QD
     Route: 065
     Dates: start: 20181219

REACTIONS (2)
  - Hallucination [Recovered/Resolved]
  - Off label use [Unknown]

NARRATIVE: CASE EVENT DATE: 20181219
